FAERS Safety Report 22244446 (Version 1)
Quarter: 2023Q2

REPORT INFORMATION
  Report Type: Report from Study
  Country: US (occurrence: US)
  Receive Date: 20230424
  Receipt Date: 20230424
  Transmission Date: 20230721
  Serious: No
  Sender: FDA-Public Use
  Company Number: US-ACADIA PHARMACEUTICALS INC.-ACA-2023-PIM-001269

PATIENT
  Age: 81 Year
  Sex: Female

DRUGS (3)
  1. NUPLAZID [Suspect]
     Active Substance: PIMAVANSERIN TARTRATE
     Indication: Parkinson^s disease
     Dosage: 34 MILLIGRAM, QD
     Route: 048
     Dates: start: 20221214
  2. NUPLAZID [Suspect]
     Active Substance: PIMAVANSERIN TARTRATE
     Dosage: 44 MILLIGRAM, QD (34 MG + 10 MG)
     Route: 048
     Dates: start: 20230310
  3. NUPLAZID [Suspect]
     Active Substance: PIMAVANSERIN TARTRATE
     Indication: Parkinson^s disease
     Dosage: 44 MILLIGRAM, QD (34 MG + 10 MG)
     Route: 048
     Dates: start: 20230310

REACTIONS (10)
  - Lethargy [Unknown]
  - Balance disorder [Unknown]
  - Bradyphrenia [Unknown]
  - Speech disorder [Unknown]
  - Paranoia [Unknown]
  - Delusion [Unknown]
  - Hallucination [Unknown]
  - Hallucination, visual [Unknown]
  - Drug ineffective [Unknown]
  - Prescribed overdose [Unknown]

NARRATIVE: CASE EVENT DATE: 20230301
